FAERS Safety Report 7487077-4 (Version None)
Quarter: 2011Q2

REPORT INFORMATION
  Report Type: 
  Country: None (occurrence: None)
  Receive Date: 20110518
  Receipt Date: 20110505
  Transmission Date: 20111010
  Serious: Yes (Other)
  Sender: FDA-Public Use
  Company Number: DE-RANBAXY-2011US-44295

PATIENT

DRUGS (6)
  1. AMOXICILLIN [Concomitant]
     Indication: ENDOCARDITIS
     Dosage: UNK
     Route: 065
  2. ATHYMIL [Suspect]
     Indication: PRODUCT USED FOR UNKNOWN INDICATION
     Dosage: 30 MG, DAILY
     Route: 048
     Dates: start: 20110207, end: 20110315
  3. BISOPROLOL FUMARATE [Concomitant]
     Indication: PRODUCT USED FOR UNKNOWN INDICATION
     Dosage: UNK
     Route: 065
  4. FUROSEMIDE [Suspect]
     Indication: PRODUCT USED FOR UNKNOWN INDICATION
     Dosage: 80 G, QD
     Route: 048
     Dates: end: 20110318
  5. PANTOPRAZOLE [Suspect]
     Indication: PRODUCT USED FOR UNKNOWN INDICATION
     Dosage: 20 MG, UNK
     Route: 048
     Dates: start: 20110207, end: 20110315
  6. DICLOFENAC SODIUM [Suspect]
     Indication: ARTHRALGIA
     Dosage: 50 MG, PRN
     Route: 048
     Dates: start: 20110221, end: 20110315

REACTIONS (1)
  - AGRANULOCYTOSIS [None]
